FAERS Safety Report 9265729 (Version 1)
Quarter: 2013Q2

REPORT INFORMATION
  Report Type: Spontaneous
  Country: US (occurrence: US)
  Receive Date: 20130501
  Receipt Date: 20130501
  Transmission Date: 20140414
  Serious: Yes (Hospitalization)
  Sender: FDA-Public Use
  Company Number: US-PURDUE-USA-2013-0101569

PATIENT
  Age: 35 Year
  Sex: Female
  Weight: 148 kg

DRUGS (5)
  1. OXYCONTIN (NDA 22-272) [Suspect]
     Indication: PAIN
     Dosage: 30 MG, QID
     Dates: start: 20120730, end: 201303
  2. LYRICA [Suspect]
     Indication: FIBROMYALGIA
     Dosage: 200 MG, TID
     Dates: start: 201104
  3. LYRICA [Suspect]
     Indication: SCIATICA
  4. EFFEXOR [Suspect]
     Indication: DEPRESSION
     Dosage: 150 MG, DAILY
     Dates: start: 20121101, end: 201303
  5. RISPERIDONE [Suspect]
     Indication: INSOMNIA
     Dosage: 1 MG, UNK
     Dates: start: 20130103, end: 201303

REACTIONS (6)
  - Musculoskeletal disorder [Unknown]
  - Migraine [Unknown]
  - Depression [Unknown]
  - Drug prescribing error [Unknown]
  - Incorrect dose administered [Unknown]
  - Diplopia [Recovered/Resolved]
